FAERS Safety Report 9190528 (Version 1)
Quarter: 2013Q1

REPORT INFORMATION
  Report Type: Spontaneous
  Country: US (occurrence: None)
  Receive Date: 20120703
  Receipt Date: 20120703
  Transmission Date: 20140127
  Serious: Yes (Other)
  Sender: FDA-Public Use
  Company Number: PHEH2012US006083

PATIENT
  Age: 38 Year
  Sex: Female

DRUGS (2)
  1. GILENYA (FTY) CAPSULE, 0.5MG [Suspect]
     Route: 048
     Dates: start: 20111223, end: 20120305
  2. CYMBALTA (DULOXETINE HYDROCHLORIDE) GEL, 60 MG [Concomitant]

REACTIONS (2)
  - White blood cell count decreased [None]
  - Lymphocyte percentage decreased [None]
